FAERS Safety Report 21555598 (Version 1)
Quarter: 2022Q4

REPORT INFORMATION
  Report Type: Spontaneous
  Country: DE (occurrence: DE)
  Receive Date: 20221104
  Receipt Date: 20221104
  Transmission Date: 20230113
  Serious: Yes (Hospitalization)
  Sender: FDA-Public Use
  Company Number: DE-PEI-202200146940

PATIENT
  Age: 47 Year
  Sex: Female
  Weight: 78 kg

DRUGS (1)
  1. AJOVY [Suspect]
     Active Substance: FREMANEZUMAB-VFRM
     Indication: Migraine
     Route: 065
     Dates: start: 2022

REACTIONS (2)
  - Ophthalmic vein thrombosis [Not Recovered/Not Resolved]
  - Visual impairment [Not Recovered/Not Resolved]

NARRATIVE: CASE EVENT DATE: 20221010
